FAERS Safety Report 9725151 (Version 2)
Quarter: 2014Q1

REPORT INFORMATION
  Report Type: Spontaneous
  Country: AR (occurrence: AR)
  Receive Date: 20131203
  Receipt Date: 20140219
  Transmission Date: 20141002
  Serious: Yes (Other)
  Sender: FDA-Public Use
  Company Number: AR-AMGEN-ARGSP2013084614

PATIENT
  Age: 68 Year
  Sex: Female

DRUGS (5)
  1. ENBREL [Suspect]
     Indication: RHEUMATOID ARTHRITIS
     Dosage: 50 MG, WEEKLY
     Route: 065
     Dates: start: 20121217
  2. CALNIER D [Concomitant]
     Indication: OSTEOPOROSIS
     Dosage: 1250 MG, UNK
  3. CALCIUM [Concomitant]
     Indication: OSTEOPOROSIS
     Dosage: UNK, MONTHLY
  4. ARTRAIT                            /00113801/ [Concomitant]
     Indication: RHEUMATOID ARTHRITIS
     Dosage: 15 MG, WEEKLY
  5. ACIFOL                             /00024201/ [Concomitant]
     Dosage: 10 MG, 1X/DAY

REACTIONS (3)
  - Rheumatoid arthritis [Recovering/Resolving]
  - Pyrexia [Recovered/Resolved]
  - Nasopharyngitis [Not Recovered/Not Resolved]
